FAERS Safety Report 10033860 (Version 1)
Quarter: 2014Q1

REPORT INFORMATION
  Report Type: Spontaneous
  Country: NL (occurrence: NL)
  Receive Date: 20140325
  Receipt Date: 20140325
  Transmission Date: 20141002
  Serious: Yes (Other)
  Sender: FDA-Public Use
  Company Number: NL-009507513-1403NLD009982

PATIENT
  Age: 21 Year
  Sex: Female

DRUGS (1)
  1. IMPLANON NXT [Suspect]
     Indication: CONTRACEPTION
     Dosage: UNK
     Route: 058
     Dates: start: 2013

REACTIONS (5)
  - Surgery [Recovered/Resolved]
  - Paraesthesia [Unknown]
  - Oedema peripheral [Unknown]
  - Medical device complication [Recovered/Resolved]
  - Device dislocation [Recovered/Resolved]
